FAERS Safety Report 4318552-9 (Version None)
Quarter: 2004Q1

REPORT INFORMATION
  Report Type: 
  Country: None (occurrence: None)
  Receive Date: 20040318
  Receipt Date: 20040114
  Transmission Date: 20041129
  Serious: Yes (Other)
  Sender: FDA-Public Use
  Company Number: PHEH2004US00918

PATIENT
  Age: 60 Year
  Sex: Female

DRUGS (6)
  1. MIACALCIN [Suspect]
     Indication: ARTHRITIS
     Route: 065
     Dates: start: 20040101, end: 20040123
  2. MIACALCIN [Suspect]
     Route: 065
     Dates: start: 19990101
  3. CALCIUM [Concomitant]
  4. VITAMIN D [Concomitant]
  5. PREVACID [Concomitant]
  6. THYROID TAB [Concomitant]

REACTIONS (10)
  - ANAL ULCER [None]
  - CONDITION AGGRAVATED [None]
  - DIZZINESS [None]
  - FATIGUE [None]
  - MOUTH ULCERATION [None]
  - MUSCULOSKELETAL STIFFNESS [None]
  - NEUTROPHIL COUNT DECREASED [None]
  - ULCER HAEMORRHAGE [None]
  - VAGINAL ULCERATION [None]
  - WHITE BLOOD CELL COUNT DECREASED [None]
